FAERS Safety Report 18588607 (Version 1)
Quarter: 2020Q4

REPORT INFORMATION
  Report Type: Spontaneous
  Country: US (occurrence: US)
  Receive Date: 20201207
  Receipt Date: 20201207
  Transmission Date: 20210114
  Serious: No
  Sender: FDA-Public Use
  Company Number: US-AMGEN-USASP2020197604

PATIENT
  Sex: Male

DRUGS (10)
  1. ATORVASTATIN [Concomitant]
     Active Substance: ATORVASTATIN
  2. METOPROLOL. [Concomitant]
     Active Substance: METOPROLOL
  3. GABAPENTIN. [Concomitant]
     Active Substance: GABAPENTIN
  4. DILTIAZEM. [Concomitant]
     Active Substance: DILTIAZEM
  5. OTEZLA [Suspect]
     Active Substance: APREMILAST
     Indication: PSORIATIC ARTHROPATHY
     Dosage: 30 MILLIGRAM, BID
     Route: 048
     Dates: start: 20180624
  6. DEXTROAMPHETAMINE [DEXAMFETAMINE] [Concomitant]
     Active Substance: DEXTROAMPHETAMINE
  7. LISINOPRIL. [Concomitant]
     Active Substance: LISINOPRIL
  8. TEMAZEPAM. [Concomitant]
     Active Substance: TEMAZEPAM
  9. AMPHETAMINE [Concomitant]
     Active Substance: AMPHETAMINE
  10. ALPRAZOLAM. [Concomitant]
     Active Substance: ALPRAZOLAM

REACTIONS (1)
  - Depression [Not Recovered/Not Resolved]
